FAERS Safety Report 9685414 (Version 2)
Quarter: 2013Q4

REPORT INFORMATION
  Report Type: Spontaneous
  Country: US (occurrence: US)
  Receive Date: 20131113
  Receipt Date: 20131113
  Transmission Date: 20140711
  Serious: No
  Sender: FDA-Public Use
  Company Number: US-TEVA-365162USA

PATIENT
  Sex: Female

DRUGS (1)
  1. DESMOPRESSIN [Suspect]
     Dosage: .3 MILLIGRAM DAILY;

REACTIONS (3)
  - Drug ineffective [Unknown]
  - Polyuria [Unknown]
  - Thirst [Unknown]
